FAERS Safety Report 24167823 (Version 1)
Quarter: 2024Q3

REPORT INFORMATION
  Report Type: Spontaneous
  Country: US (occurrence: None)
  Receive Date: 20240801
  Receipt Date: 20240801
  Transmission Date: 20241017
  Serious: Yes (Other)
  Sender: Public
  Company Number: None

PATIENT
  Age: 74 Year
  Sex: Female
  Weight: 110.7 kg

DRUGS (8)
  1. PITAVASTATIN [Suspect]
     Active Substance: PITAVASTATIN
     Indication: Blood cholesterol increased
     Dosage: 1 TABLET DAILY ORAL
     Route: 048
     Dates: start: 20240425, end: 20240701
  2. OMEPRAZOLE [Concomitant]
     Active Substance: OMEPRAZOLE
  3. HYDROCHLOROTIAZIDE [Concomitant]
  4. MONTELUKAST [Concomitant]
     Active Substance: MONTELUKAST SODIUM
  5. CLARITIN [Concomitant]
  6. VITAMIN D2 [Concomitant]
     Active Substance: ERGOCALCIFEROL
  7. VITAMIN D3 + K2 [Concomitant]
  8. COENZYME Q10 [Concomitant]
     Active Substance: DIETARY SUPPLEMENT\UBIDECARENONE

REACTIONS (14)
  - Fatigue [None]
  - Myalgia [None]
  - Muscle spasms [None]
  - Abdominal pain [None]
  - Muscle spasms [None]
  - Muscle spasms [None]
  - Muscle spasms [None]
  - Movement disorder [None]
  - Dyspnoea [None]
  - Chromaturia [None]
  - Urine viscosity abnormal [None]
  - Gait disturbance [None]
  - Housebound [None]
  - Quality of life decreased [None]

NARRATIVE: CASE EVENT DATE: 20240626
